FAERS Safety Report 23845637 (Version 9)
Quarter: 2024Q4

REPORT INFORMATION
  Report Type: Spontaneous
  Country: US (occurrence: US)
  Receive Date: 20240511
  Receipt Date: 20241010
  Transmission Date: 20250115
  Serious: No
  Sender: UNITED THERAPEUTICS
  Company Number: US-UNITED THERAPEUTICS-UNT-2024-013001

PATIENT
  Sex: Female

DRUGS (16)
  1. ORENITRAM [Suspect]
     Active Substance: TREPROSTINIL
     Indication: Pulmonary arterial hypertension
     Dosage: 6.75 MG (1 TABLET OF 1 MG AND 5 MG EACH AND 3 TABLETS OF 0.25 MG), TID
  2. ORENITRAM [Suspect]
     Active Substance: TREPROSTINIL
     Dosage: UNK
  3. ORENITRAM [Suspect]
     Active Substance: TREPROSTINIL
     Indication: Pulmonary arterial hypertension
     Dosage: UNK
  4. ORENITRAM [Suspect]
     Active Substance: TREPROSTINIL
     Indication: Pulmonary arterial hypertension
     Dosage: UNK
  5. ORENITRAM [Suspect]
     Active Substance: TREPROSTINIL
     Indication: Pulmonary arterial hypertension
     Dosage: UNK
  6. REMODULIN [Suspect]
     Active Substance: TREPROSTINIL
     Indication: Pulmonary arterial hypertension
     Dosage: UNK (PHARMACY FILLED REMUNITY PUMP), CONTINUING
  7. REMODULIN [Suspect]
     Active Substance: TREPROSTINIL
     Dosage: 0.042 ?G/KG (PHARMACY FILLED REMUNITY PUMP), CONTINUING
  8. REMODULIN [Suspect]
     Active Substance: TREPROSTINIL
     Dosage: 0.0416 ?G/KG (PHARMACY FILLED REMUNITY PUMP), CONTINUING
  9. REMODULIN [Suspect]
     Active Substance: TREPROSTINIL
     Dosage: 0.04853 ?G/KG (PHARMACY FILLED REMUNITY PUMP), CONTINUING
  10. REMODULIN [Suspect]
     Active Substance: TREPROSTINIL
     Dosage: 0.05084 ?G/KG (PHARMACY FILLED REMUNITY PUMP), CONTINUING
  11. REMODULIN [Suspect]
     Active Substance: TREPROSTINIL
     Dosage: 0.05315 ?G/KG (PHARMACY FILLED REMUNITY PUMP), CONTINUING
  12. REMODULIN [Suspect]
     Active Substance: TREPROSTINIL
     Dosage: 0.05546 ?G/KG (PHARMACY FILLED REMUNITY PUMP), CONTINUING
  13. REMODULIN [Suspect]
     Active Substance: TREPROSTINIL
     Dosage: UNK, CONTINUING
  14. TYLENOL [Suspect]
     Active Substance: ACETAMINOPHEN
     Indication: Infusion site pain
     Dosage: UNK
  15. LIDOCAINE\PRILOCAINE [Suspect]
     Active Substance: LIDOCAINE\PRILOCAINE
     Indication: Infusion site pain
     Dosage: UNK
  16. ADEMPAS [Concomitant]
     Active Substance: RIOCIGUAT
     Indication: Product used for unknown indication
     Dosage: UNK

REACTIONS (17)
  - Dyspnoea exertional [Unknown]
  - Peripheral swelling [Unknown]
  - Infusion site pain [Not Recovered/Not Resolved]
  - Dizziness [Unknown]
  - Infusion site haemorrhage [Unknown]
  - Device dislocation [Recovered/Resolved]
  - Device maintenance issue [Recovered/Resolved]
  - Therapy non-responder [Unknown]
  - Device wireless communication issue [Recovered/Resolved]
  - Device alarm issue [Recovered/Resolved]
  - Device difficult to use [Recovered/Resolved]
  - Device wireless communication issue [Unknown]
  - Device physical property issue [Unknown]
  - Device physical property issue [Unknown]
  - Device leakage [Unknown]
  - Device leakage [Unknown]
  - Device wireless communication issue [Unknown]

NARRATIVE: CASE EVENT DATE: 20240101
